FAERS Safety Report 23419301 (Version 2)
Quarter: 2024Q1

REPORT INFORMATION
  Report Type: Spontaneous
  Country: US (occurrence: US)
  Receive Date: 20240118
  Receipt Date: 20240122
  Transmission Date: 20240410
  Serious: No
  Sender: FDA-Public Use
  Company Number: US-BIOGEN-2023BI01241228

PATIENT
  Sex: Female

DRUGS (2)
  1. SKYCLARYS [Suspect]
     Active Substance: OMAVELOXOLONE
     Indication: Friedreich^s ataxia
     Dosage: 150 MILLIGRAM, QD
     Route: 050
     Dates: start: 20230705
  2. SKYCLARYS [Suspect]
     Active Substance: OMAVELOXOLONE
     Route: 050
     Dates: start: 20230705

REACTIONS (5)
  - Pain [Unknown]
  - Dyspnoea [Unknown]
  - Sinus arrhythmia [Unknown]
  - Pericardial effusion [Unknown]
  - Alanine aminotransferase increased [Recovered/Resolved]
